FAERS Safety Report 6574083-7 (Version None)
Quarter: 2010Q1

REPORT INFORMATION
  Report Type: 
  Country: None (occurrence: None)
  Receive Date: 20100208
  Receipt Date: 20100127
  Transmission Date: 20100710
  Serious: Yes (Death)
  Sender: FDA-Public Use
  Company Number: US-ELI_LILLY_AND_COMPANY-US201001005816

PATIENT
  Sex: Male
  Weight: 108.84 kg

DRUGS (4)
  1. ZYPREXA [Suspect]
     Indication: BIPOLAR DISORDER
     Dosage: 30 MG, UNK
     Dates: start: 19950101, end: 20070101
  2. ZYPREXA [Suspect]
     Dosage: 30 MG, UNK
     Dates: start: 20090330
  3. DEPAKOTE [Concomitant]
  4. LAMICTAL [Concomitant]

REACTIONS (3)
  - DEATH [None]
  - OVERDOSE [None]
  - WEIGHT INCREASED [None]
